FAERS Safety Report 5208528-1 (Version None)
Quarter: 2007Q1

REPORT INFORMATION
  Report Type: 
  Country: None (occurrence: None)
  Receive Date: 20070115
  Receipt Date: 20070108
  Transmission Date: 20070707
  Serious: Yes (Hospitalization)
  Sender: FDA-Public Use
  Company Number: FR-BOEHRINGER INGELHEIM PHARMACEUTICALS, INC.-2007-FF-00039PF

PATIENT
  Age: 75 Year
  Sex: Male

DRUGS (5)
  1. SPIRIVA [Suspect]
     Indication: BRONCHITIS CHRONIC
     Route: 055
  2. EUPHYLLINE L.A. [Suspect]
     Indication: RESPIRATORY DISORDER
     Route: 048
  3. PNEUMOREL [Concomitant]
  4. FORADIL [Concomitant]
  5. PULMICORT [Concomitant]

REACTIONS (4)
  - DIZZINESS [None]
  - HOT FLUSH [None]
  - MALAISE [None]
  - SYNCOPE [None]
